FAERS Safety Report 9998213 (Version 1)
Quarter: 2014Q1

REPORT INFORMATION
  Report Type: Spontaneous
  Country: GB (occurrence: GB)
  Receive Date: 20140311
  Receipt Date: 20140311
  Transmission Date: 20141002
  Serious: Yes (Other)
  Sender: FDA-Public Use
  Company Number: GB-MYLANLABS-2014S1004531

PATIENT
  Age: 48 Year
  Sex: Male
  Weight: 56 kg

DRUGS (6)
  1. PRAVASTATIN SODIUM [Suspect]
     Route: 048
     Dates: start: 201211, end: 201303
  2. ATORVASTATIN CALCIUM [Suspect]
     Route: 048
     Dates: start: 200709, end: 200710
  3. SIMVASTATIN [Suspect]
     Route: 048
     Dates: start: 2005, end: 200709
  4. ASPIRIN [Concomitant]
  5. LANTUS [Concomitant]
  6. NOVORAPID [Concomitant]

REACTIONS (5)
  - Muscle spasms [Recovered/Resolved with Sequelae]
  - Myopathy [Recovered/Resolved with Sequelae]
  - Neuropathy peripheral [Recovered/Resolved with Sequelae]
  - Sleep disorder [Recovered/Resolved with Sequelae]
  - Blood glucose increased [Recovered/Resolved with Sequelae]
